FAERS Safety Report 22384605 (Version 1)
Quarter: 2023Q2

REPORT INFORMATION
  Report Type: Spontaneous
  Country: DE (occurrence: DE)
  Receive Date: 20230530
  Receipt Date: 20230530
  Transmission Date: 20230721
  Serious: Yes (Congenital Anomaly)
  Sender: FDA-Public Use
  Company Number: DE-EMBRYOTOX-202206859

PATIENT

DRUGS (4)
  1. PROGESTERONE [Suspect]
     Active Substance: PROGESTERONE
     Indication: Assisted fertilisation
     Dosage: 800 MG, DAILY, 1 TRIMESTER
     Route: 064
  2. MIRTAZAPINE [Suspect]
     Active Substance: MIRTAZAPINE
     Indication: Depression
     Dosage: 7.5 MG, 1 TIME DAILY
     Route: 064
     Dates: start: 20220208, end: 20220927
  3. CETIRIZINE [Concomitant]
     Active Substance: CETIRIZINE HYDROCHLORIDE
     Indication: Hypersensitivity
     Dosage: 10 MG, 1 TIME DAILY, 20.3. - 24.5. GESTATIONAL WEEK
     Route: 064
     Dates: start: 20220701, end: 20220731
  4. FOLIC ACID\VITAMINS [Concomitant]
     Active Substance: FOLIC ACID\VITAMINS
     Indication: Prophylaxis of neural tube defect
     Dosage: 0.8 MG, DAILY, 0-33 WEEKS
     Route: 048
     Dates: start: 20220208, end: 20220927

REACTIONS (2)
  - Frenulum breve [Unknown]
  - Product use issue [Unknown]

NARRATIVE: CASE EVENT DATE: 20220901
